FAERS Safety Report 7718693-X (Version None)
Quarter: 2011Q3

REPORT INFORMATION
  Report Type: 
  Country: None (occurrence: None)
  Receive Date: 20110830
  Receipt Date: 20110818
  Transmission Date: 20111222
  Serious: Yes (Other)
  Sender: FDA-Public Use
  Company Number: US-ELI_LILLY_AND_COMPANY-US201108006841

PATIENT
  Age: 52 Year
  Sex: Male

DRUGS (5)
  1. AMBIEN [Interacting]
  2. CYMBALTA [Interacting]
     Dosage: 30 MG, UNK
     Dates: start: 20110818
  3. CYMBALTA [Suspect]
     Indication: ANXIETY
     Dosage: 30 MG, QD
  4. CYMBALTA [Interacting]
     Dosage: 60 MG, UNK
  5. TRAMADOL HCL [Interacting]
     Dosage: 50 MG, OTHER

REACTIONS (12)
  - MALAISE [None]
  - PAINFUL RESPIRATION [None]
  - POTENTIATING DRUG INTERACTION [None]
  - DYSGEUSIA [None]
  - BLOOD PRESSURE INCREASED [None]
  - DYSPHAGIA [None]
  - DYSPNOEA [None]
  - CHEST DISCOMFORT [None]
  - DRY MOUTH [None]
  - SEDATION [None]
  - FEELING HOT [None]
  - HEADACHE [None]
